FAERS Safety Report 6603989-5 (Version None)
Quarter: 2010Q1

REPORT INFORMATION
  Report Type: 
  Country: None (occurrence: None)
  Receive Date: 20100226
  Receipt Date: 20090329
  Transmission Date: 20100710
  Serious: No
  Sender: FDA-Public Use
  Company Number: A0777170A

PATIENT
  Sex: Female

DRUGS (1)
  1. LAMICTAL CD [Suspect]
     Indication: DRUG USE FOR UNKNOWN INDICATION
     Route: 065
     Dates: start: 20090301

REACTIONS (2)
  - ACCIDENTAL EXPOSURE [None]
  - URTICARIA [None]
